FAERS Safety Report 5637834-1 (Version None)
Quarter: 2008Q1

REPORT INFORMATION
  Report Type: 
  Country: None (occurrence: None)
  Receive Date: 20080220
  Receipt Date: 20080205
  Transmission Date: 20080703
  Serious: Yes (Death)
  Sender: FDA-Public Use
  Company Number: KADN20080008

PATIENT

DRUGS (1)
  1. MORPHINE [Suspect]
     Dosage: /DOSES, VARIABLE ROUTES
     Dates: end: 20060101

REACTIONS (4)
  - COMPLETED SUICIDE [None]
  - DRUG ABUSE [None]
  - INTENTIONAL DRUG MISUSE [None]
  - MEDICATION ERROR [None]
